FAERS Safety Report 6626507-4 (Version None)
Quarter: 2010Q1

REPORT INFORMATION
  Report Type: 
  Country: None (occurrence: None)
  Receive Date: 20100310
  Receipt Date: 20100224
  Transmission Date: 20100710
  Serious: Yes (Death, Hospitalization)
  Sender: FDA-Public Use
  Company Number: DE-ELI_LILLY_AND_COMPANY-DE201002006806

PATIENT
  Sex: Female

DRUGS (10)
  1. FORTEO [Suspect]
     Indication: OSTEOPOROSIS
     Dosage: 20 UG, DAILY (1/D)
     Route: 058
     Dates: start: 20100204
  2. CALCILAC                           /00944201/ [Concomitant]
     Dosage: UNK, UNKNOWN
  3. NOVALGIN [Concomitant]
     Dosage: UNK, UNKNOWN
     Route: 065
  4. PALLADONE [Concomitant]
     Dosage: UNK, UNKNOWN
     Route: 065
  5. FENISTIL [Concomitant]
     Dosage: UNK, UNKNOWN
     Route: 065
  6. PANTOZOL [Concomitant]
     Dosage: UNK, UNKNOWN
     Route: 065
  7. BELOC ZOK [Concomitant]
     Dosage: UNK, UNKNOWN
     Route: 065
  8. DIGITOXIN INJ [Concomitant]
     Dosage: UNK, UNKNOWN
     Route: 065
  9. TORSEMIDE [Concomitant]
     Dosage: UNK, UNKNOWN
     Route: 065
  10. LEVOTHYROXINE SODIUM [Concomitant]
     Dosage: UNK, UNKNOWN
     Route: 065

REACTIONS (2)
  - ANAEMIA [None]
  - CEREBRAL HAEMORRHAGE [None]
